FAERS Safety Report 7914536-X (Version None)
Quarter: 2011Q4

REPORT INFORMATION
  Report Type: 
  Country: None (occurrence: None)
  Receive Date: 20111115
  Receipt Date: 20111111
  Transmission Date: 20120403
  Serious: Yes (Death, Hospitalization, Other)
  Sender: FDA-Public Use
  Company Number: US-AMGEN-USASP2010005394

PATIENT
  Age: 78 Year
  Sex: Male

DRUGS (11)
  1. PREDNISONE TAB [Concomitant]
     Dosage: 100 MG, QD
  2. LISINOPRIL [Concomitant]
     Dosage: 20 MG, QD
  3. NEXIUM [Concomitant]
     Dosage: 20 MG, QD
  4. HUMALOG [Concomitant]
  5. NPLATE [Suspect]
     Indication: IDIOPATHIC THROMBOCYTOPENIC PURPURA
     Dosage: 3 MUG/KG, UNK
     Route: 058
     Dates: start: 20101108
  6. SYNTHROID [Concomitant]
     Dosage: 50 MUG, QD
  7. LOVAZA [Concomitant]
     Dosage: 1 G, BID
  8. HYDROCHLOROTHIAZIDE [Concomitant]
     Dosage: 25 MG, QD
  9. JANUVIA [Concomitant]
     Dosage: 50 MG, QD
  10. WELCHOL [Concomitant]
     Dosage: 625 MG, BID
  11. LANTUS [Concomitant]

REACTIONS (4)
  - HELICOBACTER INFECTION [None]
  - EPISTAXIS [None]
  - DEATH [None]
  - IDIOPATHIC THROMBOCYTOPENIC PURPURA [None]
